FAERS Safety Report 15912741 (Version 3)
Quarter: 2019Q1

REPORT INFORMATION
  Report Type: Spontaneous
  Country: PH (occurrence: PH)
  Receive Date: 20190204
  Receipt Date: 20190326
  Transmission Date: 20190417
  Serious: Yes (Hospitalization, Other)
  Sender: FDA-Public Use
  Company Number: PH-B.I. PHARMACEUTICALS,INC./RIDGEFIELD-2019-BI-004353

PATIENT
  Age: 44 Year
  Sex: Male
  Weight: 72 kg

DRUGS (3)
  1. METFORMIN [Concomitant]
     Active Substance: METFORMIN HYDROCHLORIDE
     Indication: PRODUCT USED FOR UNKNOWN INDICATION
     Route: 065
     Dates: end: 20190103
  2. JARDIANCE DUO [Suspect]
     Active Substance: EMPAGLIFLOZIN\METFORMIN HYDROCHLORIDE
     Indication: TYPE 2 DIABETES MELLITUS
     Dosage: FORM STRENGTH: 12.5/ 1000 MILLIGRAM
     Route: 065
     Dates: start: 2015, end: 201901
  3. INSULIN [Concomitant]
     Active Substance: INSULIN NOS
     Indication: PRODUCT USED FOR UNKNOWN INDICATION
     Route: 065

REACTIONS (9)
  - Blood sodium decreased [Unknown]
  - Pneumonia [Unknown]
  - Blood bicarbonate decreased [Unknown]
  - PCO2 decreased [Unknown]
  - Blood glucose increased [Unknown]
  - Blood potassium increased [Unknown]
  - Anion gap increased [Unknown]
  - Euglycaemic diabetic ketoacidosis [Recovered/Resolved]
  - Urine ketone body [Unknown]

NARRATIVE: CASE EVENT DATE: 20181231
